FAERS Safety Report 9638569 (Version 3)
Quarter: 2014Q1

REPORT INFORMATION
  Report Type: Report from Study
  Country: CA (occurrence: CA)
  Receive Date: 20131022
  Receipt Date: 20140317
  Transmission Date: 20141002
  Serious: Yes (Other)
  Sender: FDA-Public Use
  Company Number: CA-BRISTOL-MYERS SQUIBB COMPANY-19559723

PATIENT
  Age: 59 Year
  Sex: Male
  Weight: 105.67 kg

DRUGS (11)
  1. BLINDED: BYDUREON [Suspect]
     Indication: TYPE 2 DIABETES MELLITUS
     Dosage: INTRPD:13SEP13
     Dates: start: 20120926
  2. BLINDED: PLACEBO [Suspect]
     Indication: TYPE 2 DIABETES MELLITUS
     Dosage: INTRPD:13SEP13
     Dates: start: 20120926
  3. AVAPRO [Concomitant]
     Indication: HYPERTENSION
     Route: 048
     Dates: start: 20060214
  4. CIALIS [Concomitant]
     Indication: ERECTILE DYSFUNCTION
     Route: 048
     Dates: start: 20080917
  5. CRESTOR [Concomitant]
     Indication: DYSLIPIDAEMIA
     Route: 048
     Dates: start: 20070104
  6. DICLOFENAC [Concomitant]
     Indication: MUSCULOSKELETAL PAIN
     Dosage: TOPICAL GEL
     Dates: start: 20130403
  7. VERAPAMIL [Concomitant]
     Indication: HYPERTENSION
     Route: 048
     Dates: start: 20010501
  8. WARFARIN [Concomitant]
     Indication: ATRIAL FIBRILLATION
     Route: 048
     Dates: start: 19980814
  9. GLUMETZA [Concomitant]
     Indication: DIABETES MELLITUS
     Route: 048
     Dates: start: 20130403
  10. LANTUS [Concomitant]
     Indication: DIABETES MELLITUS
     Dosage: 1DF:20 UNITS
     Route: 058
     Dates: start: 20111014
  11. GLUCONORM [Concomitant]
     Indication: DIABETES MELLITUS
     Dosage: 1DF:6(UNIT NOS).
     Route: 048
     Dates: start: 20031023

REACTIONS (1)
  - Pancreatitis [Recovered/Resolved]
